FAERS Safety Report 6207370-2 (Version None)
Quarter: 2009Q2

REPORT INFORMATION
  Report Type: 
  Country: None (occurrence: None)
  Receive Date: 20090528
  Receipt Date: 20090518
  Transmission Date: 20091009
  Serious: Yes (Life-Threatening, Hospitalization, Disabling, Other)
  Sender: FDA-Public Use
  Company Number: JP-PFIZER INC-2009209949

PATIENT
  Age: 74 Year

DRUGS (11)
  1. ALDACTONE [Suspect]
     Indication: HYPERTENSION
     Dosage: 50 MG, 2X/DAY
     Route: 048
     Dates: start: 20081001, end: 20090423
  2. ALDACTONE [Suspect]
     Dosage: 25 MG, 2X/DAY
     Dates: start: 20090424, end: 20090426
  3. OLMESARTAN MEDOXOMIL [Suspect]
     Indication: HYPERTENSION
     Dates: start: 20081001, end: 20090426
  4. NORVASC [Concomitant]
     Dosage: UNK
     Route: 048
     Dates: start: 20081001, end: 20090526
  5. OPALMON [Concomitant]
     Indication: LUMBAR SPINAL STENOSIS
     Dosage: UNK
     Route: 048
     Dates: end: 20090426
  6. ADETPHOS [Concomitant]
     Indication: MENIERE'S DISEASE
     Dosage: UNK
     Route: 048
     Dates: end: 20090426
  7. MENITAZINE [Concomitant]
     Indication: MENIERE'S DISEASE
     Dosage: UNK
     Route: 048
     Dates: end: 20090426
  8. MYSLEE [Concomitant]
     Indication: INSOMNIA
     Dosage: UNK
     Route: 048
     Dates: end: 20090526
  9. TAKEPRON [Concomitant]
     Indication: GASTRIC ULCER
     Dosage: UNK
     Route: 048
     Dates: end: 20090426
  10. MUCOSTA [Concomitant]
     Indication: GASTRIC ULCER
     Dosage: UNK
     Route: 048
     Dates: end: 20090426
  11. GASTROM [Concomitant]
     Indication: GASTRIC ULCER
     Dosage: UNK
     Route: 048
     Dates: end: 20090426

REACTIONS (6)
  - ALTERED STATE OF CONSCIOUSNESS [None]
  - DELIRIUM [None]
  - FOOD INTERACTION [None]
  - HYPERKALAEMIA [None]
  - HYPONATRAEMIA [None]
  - POLYURIA [None]
